FAERS Safety Report 9630635 (Version 1)
Quarter: 2013Q4

REPORT INFORMATION
  Report Type: Spontaneous
  Country: US (occurrence: None)
  Receive Date: 20131015
  Receipt Date: 20131015
  Transmission Date: 20140711
  Serious: Yes (Death)
  Sender: FDA-Public Use
  Company Number: B0929568A

PATIENT
  Age: 22 Year
  Sex: Female

DRUGS (1)
  1. LAMOTRIGINE [Suspect]
     Indication: PARTIAL SEIZURES

REACTIONS (4)
  - Toxicity to various agents [None]
  - Toxicity to various agents [None]
  - Intentional overdose [None]
  - Cardiac failure acute [None]
